FAERS Safety Report 25458214 (Version 1)
Quarter: 2025Q2

REPORT INFORMATION
  Report Type: Spontaneous
  Country: US (occurrence: None)
  Receive Date: 20250620
  Receipt Date: 20250620
  Transmission Date: 20250716
  Serious: Yes (Other)
  Sender: EMMAUS LIFE SCIENCES
  Company Number: US-Emmaus Medical, Inc.-EMM202410-000485

PATIENT
  Age: 29 Year
  Sex: Female

DRUGS (8)
  1. ENDARI [Suspect]
     Active Substance: GLUTAMINE
     Indication: Thalassaemia beta
     Route: 048
     Dates: start: 20240516
  2. IRON DEXTRAN [Concomitant]
     Active Substance: IRON DEXTRAN
     Indication: Iron deficiency anaemia
     Route: 042
     Dates: start: 20170407
  3. FOLIC ACID [Concomitant]
     Active Substance: FOLIC ACID
     Indication: Product used for unknown indication
     Route: 048
  4. FOLIC ACID [Concomitant]
     Active Substance: FOLIC ACID
     Route: 048
     Dates: start: 20170624
  5. ProAir FFA [Concomitant]
     Indication: Wheezing
     Route: 065
     Dates: start: 20170703
  6. CVS vitamin B12 [Concomitant]
     Indication: Product used for unknown indication
     Route: 048
     Dates: start: 20170624
  7. Bupropion HCI [Concomitant]
     Indication: Product used for unknown indication
     Route: 048
     Dates: start: 20240326
  8. FERROUS SULFATE [Concomitant]
     Active Substance: FERROUS SULFATE
     Indication: Product used for unknown indication
     Route: 048
     Dates: start: 20170624

REACTIONS (3)
  - Sickle cell anaemia with crisis [Unknown]
  - Bowel movement irregularity [Unknown]
  - Weight decreased [Unknown]

NARRATIVE: CASE EVENT DATE: 20240101
